FAERS Safety Report 20440269 (Version 1)
Quarter: 2022Q1

REPORT INFORMATION
  Report Type: Spontaneous
  Country: US (occurrence: None)
  Receive Date: 20220206
  Receipt Date: 20220206
  Transmission Date: 20220423
  Serious: Yes (Life-Threatening, Disabling, Other)
  Sender: FDA-Public Use
  Company Number: None

PATIENT
  Age: 34 Year
  Sex: Female
  Weight: 53.1 kg

DRUGS (6)
  1. KENALOG [Suspect]
     Active Substance: TRIAMCINOLONE ACETONIDE
  2. SPIRONOLACTONE [Concomitant]
     Active Substance: SPIRONOLACTONE
  3. birth control- administered now to control effects from kenalog [Concomitant]
  4. Nutrafol multivitamin [Concomitant]
  5. VITAMIN D NOS [Concomitant]
     Active Substance: VITAMIN D NOS
  6. adrenal gland supplement [Concomitant]

REACTIONS (13)
  - Hepatotoxicity [None]
  - Skin atrophy [None]
  - Weight increased [None]
  - Insulin resistance [None]
  - Fat redistribution [None]
  - Headache [None]
  - Mental disorder [None]
  - Sodium retention [None]
  - Oedema peripheral [None]
  - Palpitations [None]
  - Amenorrhoea [None]
  - Cushing^s syndrome [None]
  - Adrenal disorder [None]

NARRATIVE: CASE EVENT DATE: 20210521
